FAERS Safety Report 20346222 (Version 1)
Quarter: 2022Q1

REPORT INFORMATION
  Report Type: Report from Study
  Country: US (occurrence: US)
  Receive Date: 20220118
  Receipt Date: 20220118
  Transmission Date: 20220423
  Serious: Yes (Other)
  Sender: FDA-Public Use
  Company Number: US-SA-2020SA084747

PATIENT
  Age: 63 Year
  Sex: Female

DRUGS (12)
  1. TERIFLUNOMIDE [Suspect]
     Active Substance: TERIFLUNOMIDE
     Indication: Multiple sclerosis
     Dosage: 14 MG, QD
     Route: 048
     Dates: start: 20200324
  2. GABAPENTIN [Suspect]
     Active Substance: GABAPENTIN
     Indication: Hallucination
     Dosage: 900 MG, TID
     Dates: end: 20211023
  3. AMITRIPTYLINE [Concomitant]
     Active Substance: AMITRIPTYLINE
     Indication: Pain in extremity
     Dosage: UNK
     Dates: start: 202110
  4. AMLODIPINE [Concomitant]
     Active Substance: AMLODIPINE BESYLATE
     Indication: Blood pressure abnormal
  5. LINAGLIPTIN [Concomitant]
     Active Substance: LINAGLIPTIN
     Indication: Type 2 diabetes mellitus
     Dosage: UNK
     Dates: start: 202101
  6. LYRICA [Concomitant]
     Active Substance: PREGABALIN
     Dates: start: 20211023
  7. IBUPROFEN [Concomitant]
     Active Substance: IBUPROFEN
     Indication: Pain
  8. NAPROXEN [Concomitant]
     Active Substance: NAPROXEN
  9. ATORVASTATIN [Concomitant]
     Active Substance: ATORVASTATIN
     Dosage: UNK
  10. ROSUVASTATIN [Concomitant]
     Active Substance: ROSUVASTATIN
  11. AMMONIUM LACTATE [Concomitant]
     Active Substance: AMMONIUM LACTATE
  12. PARAFFIN [Concomitant]
     Active Substance: PARAFFIN
     Indication: Dry skin

REACTIONS (16)
  - Hallucination [Unknown]
  - Type 2 diabetes mellitus [Unknown]
  - Abdominal discomfort [Not Recovered/Not Resolved]
  - Diarrhoea [Not Recovered/Not Resolved]
  - Hypertension [Unknown]
  - Malaise [Not Recovered/Not Resolved]
  - Depression [Not Recovered/Not Resolved]
  - Somnolence [Unknown]
  - Pain in extremity [Unknown]
  - Urinary tract infection [Unknown]
  - Cough [Unknown]
  - Dry skin [Unknown]
  - Blood pressure abnormal [Unknown]
  - Blood glucose increased [Unknown]
  - Solar lentigo [Unknown]
  - Pain [Unknown]

NARRATIVE: CASE EVENT DATE: 20200101
